FAERS Safety Report 10258080 (Version 7)
Quarter: 2014Q4

REPORT INFORMATION
  Report Type: Spontaneous
  Country: US (occurrence: None)
  Receive Date: 20140623
  Receipt Date: 20141008
  Transmission Date: 20150528
  Serious: Yes (Hospitalization)
  Sender: FDA-Public Use
  Company Number: UNT-2014-002225

PATIENT
  Age: 67 Year
  Sex: Female
  Weight: 93.2 kg

DRUGS (2)
  1. REVATIO [Concomitant]
     Active Substance: SILDENAFIL CITRATE
  2. REMODULIN [Suspect]
     Active Substance: TREPROSTINIL
     Indication: PULMONARY ARTERIAL HYPERTENSION
     Dosage: 0.02 YG/KG, CONTINUING, IV DRIP
     Route: 041
     Dates: start: 20090804

REACTIONS (7)
  - Cardiac failure [None]
  - Chronic kidney disease [None]
  - Herpes zoster [None]
  - Osteomyelitis [None]
  - Dialysis [None]
  - Toe amputation [None]
  - Diabetic nephropathy [None]

NARRATIVE: CASE EVENT DATE: 20140530
